FAERS Safety Report 6049159-3 (Version None)
Quarter: 2009Q1

REPORT INFORMATION
  Report Type: 
  Country: None (occurrence: None)
  Receive Date: 20090123
  Receipt Date: 20090113
  Transmission Date: 20090719
  Serious: No
  Sender: FDA-Public Use
  Company Number: CA-ELI_LILLY_AND_COMPANY-CA200807002999

PATIENT
  Age: 61 Year
  Sex: Female

DRUGS (13)
  1. CYMBALTA [Suspect]
     Dosage: 90 MG, UNK
     Dates: start: 20080301, end: 20080601
  2. VASOTEC [Concomitant]
     Dosage: 40 MG, UNK
  3. METHYLPHENIDATE HCL [Concomitant]
     Dosage: 5 MG, 2/D
  4. COUMADIN [Concomitant]
     Dosage: 7.5 MG, UNK
  5. LIPITOR [Concomitant]
     Dosage: 40 MG, UNK
  6. NORVASC [Concomitant]
     Dosage: 5 MG, UNK
  7. TYLENOL                                 /SCH/ [Concomitant]
     Dosage: UNK, AS NEEDED
  8. OXYCODONE HCL [Concomitant]
     Dosage: UNK, AS NEEDED
  9. EZETROL [Concomitant]
     Dosage: 10 MG, UNK
  10. CLONAZEPAM [Concomitant]
     Dosage: 0.25 MG, UNK
  11. LAMOTRIGINE [Concomitant]
     Dosage: 162.5 MG, UNK
  12. ALBUTEROL SULFATE [Concomitant]
     Dosage: UNK, AS NEEDED
  13. RABEPRAZOLE SODIUM [Concomitant]
     Dosage: 20 MG, UNK

REACTIONS (3)
  - BLOOD ALKALINE PHOSPHATASE INCREASED [None]
  - GAMMA-GLUTAMYLTRANSFERASE INCREASED [None]
  - HEPATIC STEATOSIS [None]
